FAERS Safety Report 5250173-6 (Version None)
Quarter: 2007Q1

REPORT INFORMATION
  Report Type: 
  Country: None (occurrence: None)
  Receive Date: 20070228
  Receipt Date: 20060310
  Transmission Date: 20070707
  Serious: Yes (Other)
  Sender: FDA-Public Use
  Company Number: US-GLAXOSMITHKLINE-A0594382A

PATIENT
  Age: 40 Year
  Sex: Female
  Weight: 74.1 kg

DRUGS (8)
  1. LAMICTAL [Suspect]
     Indication: DEPRESSION
     Route: 048
     Dates: start: 20051001, end: 20060205
  2. GLUCOPHAGE [Concomitant]
  3. STRATTERA [Concomitant]
  4. WELLBUTRIN XL [Concomitant]
  5. AMBIEN [Concomitant]
  6. KLONOPIN [Concomitant]
  7. UNKNOWN MEDICATION [Concomitant]
  8. CLARITIN-D [Concomitant]

REACTIONS (2)
  - PRURITUS [None]
  - RASH [None]
